FAERS Safety Report 6183077-5 (Version None)
Quarter: 2009Q2

REPORT INFORMATION
  Report Type: 
  Country: None (occurrence: None)
  Receive Date: 20090507
  Receipt Date: 20090428
  Transmission Date: 20091009
  Serious: Yes (Hospitalization)
  Sender: FDA-Public Use
  Company Number: US-ELI_LILLY_AND_COMPANY-US200903005246

PATIENT
  Sex: Female

DRUGS (7)
  1. ZYPREXA [Suspect]
     Dosage: 15 MG, UNK
     Dates: start: 20090302, end: 20090306
  2. HUMALOG [Concomitant]
  3. LANTUS [Concomitant]
  4. LISINOPRIL [Concomitant]
  5. ALBUTEROL [Concomitant]
  6. ZYRTEC [Concomitant]
  7. OMEPRAZOLE [Concomitant]

REACTIONS (4)
  - AGITATION [None]
  - BLOOD GLUCOSE INCREASED [None]
  - IMPAIRED DRIVING ABILITY [None]
  - PSYCHOTIC DISORDER [None]
